FAERS Safety Report 18264631 (Version 1)
Quarter: 2020Q3

REPORT INFORMATION
  Report Type: Spontaneous
  Country: DE (occurrence: DE)
  Receive Date: 20200915
  Receipt Date: 20200915
  Transmission Date: 20201103
  Serious: Yes (Hospitalization, Other)
  Sender: FDA-Public Use
  Company Number: DE-AUROBINDO-AUR-APL-2017-07351

PATIENT
  Age: 54 Year
  Sex: Male

DRUGS (7)
  1. RISPERIDONE. [Suspect]
     Active Substance: RISPERIDONE
     Indication: MAJOR DEPRESSION
     Dosage: CUMULATIVE DOSE 176 MG
     Route: 065
  2. TILIDINE [Suspect]
     Active Substance: TILIDINE
     Indication: MAJOR DEPRESSION
     Dosage: CUMULATIVE DOSE 1400 MG
     Route: 065
  3. MOCLOBEMIDE [Suspect]
     Active Substance: MOCLOBEMIDE
     Indication: MAJOR DEPRESSION
     Dosage: CUMULATIVE DOSE 6750 MG
     Route: 065
  4. DIAZEPAM. [Suspect]
     Active Substance: DIAZEPAM
     Indication: MAJOR DEPRESSION
     Dosage: CUMULATIVE DOSE 325 MG
     Route: 065
  5. MIRTAZAPINE. [Suspect]
     Active Substance: MIRTAZAPINE
     Indication: MAJOR DEPRESSION
     Dosage: CUMULATIVE DOSE 1100 MG
     Route: 065
  6. PERAZINE [Suspect]
     Active Substance: PERAZINE
     Indication: MAJOR DEPRESSION
     Dosage: CUMULATIVE DOSE 1800 MG
     Route: 065
  7. MAPROTILINE [Suspect]
     Active Substance: MAPROTILINE
     Indication: MAJOR DEPRESSION
     Dosage: CUMULATIVE DOSE 900 MG
     Route: 042

REACTIONS (4)
  - Delirium [Unknown]
  - CSF protein increased [Unknown]
  - Memory impairment [Recovered/Resolved]
  - Confusional state [Recovered/Resolved]
